FAERS Safety Report 24261066 (Version 1)
Quarter: 2024Q3

REPORT INFORMATION
  Report Type: Spontaneous
  Country: FR (occurrence: FR)
  Receive Date: 20240829
  Receipt Date: 20240829
  Transmission Date: 20241016
  Serious: Yes (Other)
  Sender: NOVO NORDISK
  Company Number: None

PATIENT
  Age: 44 Year
  Sex: Female
  Weight: 96.9 kg

DRUGS (8)
  1. MENOPUR [Concomitant]
     Active Substance: FOLLITROPIN\LUTEINIZING HORMONE
     Indication: In vitro fertilisation
     Dosage: UNK
     Dates: start: 202309, end: 202309
  2. ALDOMET [Concomitant]
     Active Substance: METHYLDOPA
     Indication: Hypertension
     Dosage: UNK
     Route: 048
     Dates: start: 202405
  3. TRANDATE [Concomitant]
     Active Substance: LABETALOL HYDROCHLORIDE
     Indication: Hypertension
     Dosage: UNK
     Route: 048
     Dates: start: 202406
  4. LOXEN [Concomitant]
     Indication: Hypertension
     Dosage: UNK
     Route: 048
     Dates: start: 202406
  5. LIRAGLUTIDE [Suspect]
     Active Substance: LIRAGLUTIDE
     Indication: Weight control
     Dosage: UNK
     Route: 058
     Dates: start: 202304, end: 202309
  6. CHORIOGONADOTROPIN ALFA [Concomitant]
     Active Substance: CHORIOGONADOTROPIN ALFA
     Indication: In vitro fertilisation
     Dosage: UNK
     Dates: start: 202309, end: 202309
  7. DECAPEPTYL (ACETATE) [Suspect]
     Active Substance: TRIPTORELIN ACETATE
     Indication: In vitro fertilisation
     Dosage: UNK
     Route: 048
     Dates: start: 202309, end: 202309
  8. ORGALUTRAN [Concomitant]
     Active Substance: GANIRELIX ACETATE
     Indication: In vitro fertilisation
     Dosage: UNK
     Dates: start: 202309, end: 202309

REACTIONS (3)
  - Osteopenia [Not Recovered/Not Resolved]
  - Bone pain [Not Recovered/Not Resolved]
  - Bone fissure [Not Recovered/Not Resolved]

NARRATIVE: CASE EVENT DATE: 20240615
